FAERS Safety Report 7754103-4 (Version None)
Quarter: 2011Q3

REPORT INFORMATION
  Report Type: 
  Country: None (occurrence: None)
  Receive Date: 20110915
  Receipt Date: 20110906
  Transmission Date: 20111222
  Serious: Yes (Other)
  Sender: FDA-Public Use
  Company Number: US-ASTRAZENECA-2010SE47903

PATIENT
  Sex: Female

DRUGS (1)
  1. NEXIUM [Suspect]
     Indication: GASTROOESOPHAGEAL REFLUX DISEASE
     Dosage: ONE CAPSULE IN AM AND ONE IN PM
     Route: 048
     Dates: start: 19950101

REACTIONS (7)
  - VOCAL CORD THICKENING [None]
  - COUGH [None]
  - PHARYNGEAL ERYTHEMA [None]
  - LUNG NEOPLASM [None]
  - GASTROOESOPHAGEAL REFLUX DISEASE [None]
  - LARYNGITIS [None]
  - ASPIRATION [None]
